FAERS Safety Report 9030395 (Version 4)
Quarter: 2014Q2

REPORT INFORMATION
  Report Type: Report from Study
  Country: NZ (occurrence: NZ)
  Receive Date: 20130122
  Receipt Date: 20140423
  Transmission Date: 20141212
  Serious: Yes (Hospitalization)
  Sender: FDA-Public Use
  Company Number: NZ-ROCHE-1174808

PATIENT
  Age: 26 Year
  Sex: Female
  Weight: 56.9 kg

DRUGS (11)
  1. TRASTUZUMAB [Suspect]
     Indication: BREAST CANCER
     Dosage: DATE OF LAST DOSE ADMINISTERED:20/DEC/2012
     Route: 042
     Dates: start: 20121220, end: 20130103
  2. TRASTUZUMAB [Suspect]
     Route: 042
     Dates: start: 20140115
  3. PACLITAXEL [Suspect]
     Indication: BREAST CANCER
     Dosage: DATE OF LAST DOSE ADMINISTERED:27/DEC/2012
     Route: 042
     Dates: start: 20121220, end: 20130103
  4. PACLITAXEL [Suspect]
     Route: 042
     Dates: start: 20140107
  5. ONDANSETRON [Concomitant]
     Route: 065
     Dates: start: 201208
  6. ONDANSETRON [Concomitant]
     Route: 065
     Dates: start: 20121106, end: 20121227
  7. DEXAMETHASON [Concomitant]
     Route: 065
     Dates: start: 201208
  8. DEXAMETHASON [Concomitant]
     Route: 065
     Dates: start: 20120912, end: 20121228
  9. TAMOXIFEN [Concomitant]
     Route: 065
     Dates: start: 20130528
  10. CLEXANE [Concomitant]
  11. PLACEBO [Suspect]
     Indication: BREAST CANCER
     Dosage: DATE OF LAST DOSE ADMINISTERED:20/DEC/2012
     Route: 042
     Dates: start: 20121220, end: 20130103

REACTIONS (1)
  - Acute coronary syndrome [Recovered/Resolved]
